FAERS Safety Report 9274620 (Version 1)
Quarter: 2013Q2

REPORT INFORMATION
  Report Type: Spontaneous
  Country: FR (occurrence: FR)
  Receive Date: 20130507
  Receipt Date: 20130507
  Transmission Date: 20140414
  Serious: Yes (Hospitalization)
  Sender: FDA-Public Use
  Company Number: FR-GE HEALTHCARE MEDICAL DIAGNOSTICS-OMPQ-PR-1305S-0537

PATIENT
  Age: 87 Year
  Sex: Male

DRUGS (13)
  1. OMNIPAQUE [Suspect]
     Indication: PRODUCT USED FOR UNKNOWN INDICATION
     Route: 042
     Dates: start: 20130125, end: 20130125
  2. OMNIPAQUE [Suspect]
     Indication: DIAGNOSTIC PROCEDURE
  3. BRILIQUE [Concomitant]
  4. KARDEGIC [Concomitant]
  5. FUROSEMIDE [Concomitant]
  6. TAHOR [Concomitant]
  7. INEXIUM [Concomitant]
  8. TANGANIL [Concomitant]
  9. BISOCE [Concomitant]
  10. UVEDOSE [Concomitant]
  11. INSULIN [Concomitant]
  12. CIPROFLOXACIN [Concomitant]
  13. ZYLORIC [Concomitant]

REACTIONS (1)
  - Renal failure acute [Recovered/Resolved with Sequelae]
